FAERS Safety Report 7742331-3 (Version None)
Quarter: 2011Q3

REPORT INFORMATION
  Report Type: 
  Country: None (occurrence: None)
  Receive Date: 20110829
  Receipt Date: 20110822
  Transmission Date: 20111222
  Serious: Yes (Death, Life-Threatening, Hospitalization, Disabling, Other)
  Sender: FDA-Public Use
  Company Number: DSA_47221_2011

PATIENT
  Sex: Male

DRUGS (11)
  1. HYDROXYZINE [Concomitant]
  2. AMBIEN [Concomitant]
  3. SIMVASTATIN [Concomitant]
  4. ASPIRIN [Concomitant]
  5. FUROSEMIDE [Concomitant]
  6. EFFEXOR XR [Concomitant]
  7. GABAPENTIN [Concomitant]
  8. XENAZINE [Suspect]
     Indication: HUNTINGTON'S DISEASE
     Dosage: 25 MG TID ORAL
     Route: 048
     Dates: start: 20110502, end: 20110711
  9. RISPERIDONE [Concomitant]
  10. POTASSIUM CHLORIDE [Concomitant]
  11. NIFEDIPINE [Concomitant]

REACTIONS (2)
  - CEREBRAL HAEMORRHAGE [None]
  - FALL [None]
